FAERS Safety Report 5423714-3 (Version None)
Quarter: 2007Q3

REPORT INFORMATION
  Report Type: 
  Country: None (occurrence: None)
  Receive Date: 20070727
  Receipt Date: 20060427
  Transmission Date: 20080115
  Serious: Yes (Death, Hospitalization)
  Sender: FDA-Public Use
  Company Number: THYM-10906

PATIENT
  Age: 60 Year
  Sex: Male
  Weight: 55.7924 kg

DRUGS (11)
  1. THYMOGLOBULIN [Suspect]
     Indication: ACUTE GRAFT VERSUS HOST DISEASE
     Dosage: 0.5 MG/KG QD IV
     Route: 042
     Dates: start: 20050213, end: 20050213
  2. THYMOGLOBULIN [Suspect]
     Indication: PROPHYLAXIS
     Dosage: 0.5 MG/KG QD IV
     Route: 042
     Dates: start: 20050213, end: 20050213
  3. THYMOGLOBULIN [Suspect]
     Indication: ACUTE GRAFT VERSUS HOST DISEASE
     Dosage: 2.5 MG/KG QD IV
     Route: 042
     Dates: start: 20050214, end: 20050214
  4. THYMOGLOBULIN [Suspect]
     Indication: PROPHYLAXIS
     Dosage: 2.5 MG/KG QD IV
     Route: 042
     Dates: start: 20050214, end: 20050214
  5. THYMOGLOBULIN [Suspect]
     Indication: ACUTE GRAFT VERSUS HOST DISEASE
     Dosage: 3 MG/KG QD IV
     Route: 042
     Dates: start: 20050215, end: 20050215
  6. THYMOGLOBULIN [Suspect]
     Indication: PROPHYLAXIS
     Dosage: 3 MG/KG QD IV
     Route: 042
     Dates: start: 20050215, end: 20050215
  7. ACYCLOVIR [Concomitant]
  8. AMICAR [Concomitant]
  9. CIPROFLOXACIN [Concomitant]
  10. VORICONAZOLE [Concomitant]
  11. MULTI-VITAMIN [Concomitant]

REACTIONS (3)
  - ANAEMIA [None]
  - CRYPTOGENIC ORGANISING PNEUMONIA [None]
  - MYELODYSPLASTIC SYNDROME [None]
